FAERS Safety Report 7880762 (Version 3)
Quarter: 2012Q4

REPORT INFORMATION
  Report Type: 
  Country: US (occurrence: US)
  Receive Date: 20110331
  Receipt Date: 20120914
  Transmission Date: 20130627
  Serious: Yes (Hospitalization)
  Sender: FDA-Public Use
  Company Number: US-BAYER-2011-027248

PATIENT
  Age: 26 Year
  Sex: Female
  Weight: 58.96 kg

DRUGS (6)
  1. YASMIN [Suspect]
     Indication: CONTRACEPTION
     Dosage: UNK
     Route: 048
     Dates: start: 200111, end: 200201
  2. YASMIN [Suspect]
     Indication: PREMENSTRUAL SYNDROME
     Dosage: UNK
     Route: 048
     Dates: start: 200111, end: 200112
  3. BISMUTH SALICYLATE [Concomitant]
  4. PEPTO BISMOL [Concomitant]
  5. PROTONIX [Concomitant]
  6. DONNATAL [Concomitant]

REACTIONS (9)
  - Pulmonary embolism [None]
  - Chest pain [None]
  - Dyspnoea [None]
  - Pulmonary embolism [Recovered/Resolved]
  - Varicose vein [None]
  - Lower extremity mass [None]
  - Fear [None]
  - Pain [None]
  - Mental disorder [None]
